FAERS Safety Report 15286575 (Version 1)
Quarter: 2018Q3

REPORT INFORMATION
  Report Type: Spontaneous
  Country: FR (occurrence: FR)
  Receive Date: 20180816
  Receipt Date: 20180816
  Transmission Date: 20181010
  Serious: Yes (Hospitalization)
  Sender: FDA-Public Use
  Company Number: PHHY2018FR071487

PATIENT
  Age: 53 Year
  Sex: Male
  Weight: 78 kg

DRUGS (5)
  1. ALEPSAL [Concomitant]
     Active Substance: ATROPA BELLADONNA\CAFFEINE\PHENOBARBITAL
     Indication: PRODUCT USED FOR UNKNOWN INDICATION
     Dosage: UNK
     Route: 065
  2. SERETIDE [Concomitant]
     Active Substance: FLUTICASONE PROPIONATE\SALMETEROL XINAFOATE
     Indication: PRODUCT USED FOR UNKNOWN INDICATION
     Dosage: UNK
     Route: 065
  3. VENTOLINE [Concomitant]
     Active Substance: ALBUTEROL
     Indication: PRODUCT USED FOR UNKNOWN INDICATION
     Dosage: UNK
     Route: 065
  4. ELIQUIS [Concomitant]
     Active Substance: APIXABAN
     Indication: PRODUCT USED FOR UNKNOWN INDICATION
     Dosage: UNK
     Route: 065
  5. TEGRETOL [Suspect]
     Active Substance: CARBAMAZEPINE
     Indication: POST-TRAUMATIC EPILEPSY
     Dosage: 1200 MG, QD
     Route: 048
     Dates: start: 1987, end: 201805

REACTIONS (3)
  - Warm type haemolytic anaemia [Recovering/Resolving]
  - Hypovitaminosis [Recovering/Resolving]
  - Sinus tachycardia [Recovered/Resolved]

NARRATIVE: CASE EVENT DATE: 201805
